FAERS Safety Report 14158379 (Version 3)
Quarter: 2018Q4

REPORT INFORMATION
  Report Type: Spontaneous
  Country: AR (occurrence: AR)
  Receive Date: 20171103
  Receipt Date: 20181019
  Transmission Date: 20190204
  Serious: Yes (Other)
  Sender: FDA-Public Use
  Company Number: AR-PFIZER INC-2017473060

PATIENT
  Age: 71 Year
  Sex: Female

DRUGS (7)
  1. CORBIS [Concomitant]
     Dosage: UNK
     Dates: start: 2004
  2. PARACETAMOL [Concomitant]
     Active Substance: ACETAMINOPHEN
  3. IBRANCE [Suspect]
     Active Substance: PALBOCICLIB
     Indication: BREAST CANCER METASTATIC
     Dosage: 125 MG, CYCLIC 3/1
     Dates: start: 20170719, end: 2017
  4. REGULIP [GEMFIBROZIL] [Concomitant]
     Dosage: UNK
     Dates: start: 2017
  5. ULCOZOL [OMEPRAZOLE] [Concomitant]
     Dosage: UNK
     Dates: start: 2004
  6. MORFINA ATR MOLTEN [Concomitant]
     Dosage: UNK
     Dates: start: 201808
  7. LYRICA [Concomitant]
     Active Substance: PREGABALIN
     Dosage: UNK
     Dates: start: 2004

REACTIONS (3)
  - Accident [Unknown]
  - Upper limb fracture [Not Recovered/Not Resolved]
  - Decreased immune responsiveness [Not Recovered/Not Resolved]

NARRATIVE: CASE EVENT DATE: 2017
